FAERS Safety Report 21907523 (Version 1)
Quarter: 2023Q1

REPORT INFORMATION
  Report Type: Spontaneous
  Country: FR (occurrence: FR)
  Receive Date: 20230125
  Receipt Date: 20230125
  Transmission Date: 20230418
  Serious: Yes (Life-Threatening)
  Sender: FDA-Public Use
  Company Number: None

PATIENT
  Age: 40 Year
  Sex: Female
  Weight: 62 kg

DRUGS (2)
  1. RINVOQ [Suspect]
     Active Substance: UPADACITINIB
     Indication: SAPHO syndrome
     Dosage: FORM STRENGTH:15 MG
     Route: 048
     Dates: start: 202209, end: 20221124
  2. METHYLPREDNISOLONE [Suspect]
     Active Substance: METHYLPREDNISOLONE
     Indication: SAPHO syndrome
     Route: 048
     Dates: start: 2021, end: 20221124

REACTIONS (3)
  - Truncus coeliacus thrombosis [Recovering/Resolving]
  - Mesenteric artery thrombosis [Recovering/Resolving]
  - Aortic thrombosis [Recovering/Resolving]

NARRATIVE: CASE EVENT DATE: 20221124
